FAERS Safety Report 9814917 (Version 2)
Quarter: 2014Q3

REPORT INFORMATION
  Report Type: Spontaneous
  Country: US (occurrence: US)
  Receive Date: 20140113
  Receipt Date: 20140820
  Transmission Date: 20150326
  Serious: Yes (Hospitalization, Other)
  Sender: FDA-Public Use
  Company Number: US-009507513-1401USA005001

PATIENT
  Sex: Female

DRUGS (13)
  1. PHENERGAN [Concomitant]
     Active Substance: PROMETHAZINE HYDROCHLORIDE
  2. STRATTERA [Concomitant]
     Active Substance: ATOMOXETINE HYDROCHLORIDE
  3. TRAZODONE HYDROCHLORIDE. [Concomitant]
     Active Substance: TRAZODONE HYDROCHLORIDE
  4. ZANAFLEX [Concomitant]
     Active Substance: TIZANIDINE HYDROCHLORIDE
  5. FELDENE [Concomitant]
     Active Substance: PIROXICAM
  6. PREVACID [Concomitant]
     Active Substance: LANSOPRAZOLE
  7. ZOMIG [Concomitant]
     Active Substance: ZOLMITRIPTAN
  8. REMERON [Concomitant]
     Active Substance: MIRTAZAPINE
  9. LYRICA [Concomitant]
     Active Substance: PREGABALIN
  10. NUVARING [Suspect]
     Active Substance: ETHINYL ESTRADIOL\ETONOGESTREL
     Indication: CONTRACEPTION
     Dosage: UNK
     Route: 067
     Dates: end: 20070116
  11. KEPPRA [Concomitant]
     Active Substance: LEVETIRACETAM
  12. XANAX [Concomitant]
     Active Substance: ALPRAZOLAM
  13. PROVIGIL [Concomitant]
     Active Substance: MODAFINIL

REACTIONS (3)
  - Toxicity to various agents [Recovered/Resolved]
  - Pulmonary embolism [Recovering/Resolving]
  - Staphylococcal bacteraemia [Recovering/Resolving]

NARRATIVE: CASE EVENT DATE: 20070116
